APPROVED DRUG PRODUCT: LEVOFLOXACIN IN DEXTROSE 5% IN PLASTIC CONTAINER
Active Ingredient: LEVOFLOXACIN
Strength: EQ 750MG/150ML (EQ 5MG/ML)
Dosage Form/Route: INJECTABLE;INJECTION
Application: A091375 | Product #003 | TE Code: AP
Applicant: HIKMA FARMACEUTICA (PORTUGAL) SA
Approved: Sep 16, 2011 | RLD: No | RS: No | Type: RX